FAERS Safety Report 12135111 (Version 2)
Quarter: 2016Q2

REPORT INFORMATION
  Report Type: Spontaneous
  Country: US (occurrence: US)
  Receive Date: 20160301
  Receipt Date: 20160404
  Transmission Date: 20160815
  Serious: No
  Sender: FDA-Public Use
  Company Number: US-TEVA-639996USA

PATIENT
  Age: 56 Year
  Sex: Female
  Weight: 72.64 kg

DRUGS (6)
  1. LYRICA [Suspect]
     Active Substance: PREGABALIN
     Indication: FIBROMYALGIA
     Dosage: 150 MILLIGRAM DAILY;
     Route: 048
  2. OXYCONTIN [Suspect]
     Active Substance: OXYCODONE HYDROCHLORIDE
     Indication: PAIN
     Dosage: 20 MILLIGRAM DAILY;
     Route: 048
  3. OXYCODONE [Suspect]
     Active Substance: OXYCODONE
     Indication: PAIN
     Dosage: 10 MILLIGRAM DAILY;
     Route: 048
  4. AMRIX [Suspect]
     Active Substance: CYCLOBENZAPRINE HYDROCHLORIDE
     Indication: PAIN
     Route: 065
  5. SALSALATE. [Concomitant]
     Active Substance: SALSALATE
     Indication: ARTHRITIS
  6. DULERA [Concomitant]
     Active Substance: FORMOTEROL FUMARATE DIHYDRATE\MOMETASONE FUROATE
     Indication: ARTHRITIS
     Route: 055

REACTIONS (9)
  - Euphoric mood [Recovered/Resolved]
  - Constipation [Recovered/Resolved]
  - Dizziness [Recovered/Resolved]
  - Feeling abnormal [Unknown]
  - Dry mouth [Recovered/Resolved]
  - Thinking abnormal [Recovered/Resolved]
  - Crying [Recovered/Resolved]
  - Fatigue [Unknown]
  - Emotional disorder [Recovered/Resolved]

NARRATIVE: CASE EVENT DATE: 20150530
